FAERS Safety Report 15663207 (Version 6)
Quarter: 2019Q4

REPORT INFORMATION
  Report Type: Spontaneous
  Country: US (occurrence: US)
  Receive Date: 20181128
  Receipt Date: 20191122
  Transmission Date: 20200122
  Serious: No
  Sender: FDA-Public Use
  Company Number: US-SA-2018SA323238

PATIENT
  Age: 66 Year
  Sex: Male

DRUGS (2)
  1. DUPIXENT [Suspect]
     Active Substance: DUPILUMAB
     Dosage: 300 MG, QOW
     Route: 058
     Dates: start: 201812
  2. DUPIXENT [Suspect]
     Active Substance: DUPILUMAB
     Indication: DERMATITIS ATOPIC
     Dosage: 600 MG, 1X
     Route: 058
     Dates: start: 201808, end: 201808

REACTIONS (15)
  - Back injury [Unknown]
  - Blepharitis [Unknown]
  - Ocular hyperaemia [Unknown]
  - Erythema of eyelid [Unknown]
  - Dry skin [Unknown]
  - Accident [Unknown]
  - Eye swelling [Unknown]
  - Eye pain [Unknown]
  - Eyelids pruritus [Unknown]
  - Eye inflammation [Unknown]
  - Swelling of eyelid [Unknown]
  - Skin exfoliation [Unknown]
  - Injection site pain [Unknown]
  - Neck injury [Unknown]
  - Eye pruritus [Unknown]
